FAERS Safety Report 16986350 (Version 1)
Quarter: 2019Q4

REPORT INFORMATION
  Report Type: Spontaneous
  Country: US (occurrence: US)
  Receive Date: 20190918
  Receipt Date: 20190918
  Transmission Date: 20200122
  Serious: Yes (Hospitalization, Other)
  Sender: FDA-Public Use
  Company Number: None

PATIENT
  Age: 56 Year
  Sex: Male

DRUGS (2)
  1. TACROLIMUS. [Concomitant]
     Active Substance: TACROLIMUS
  2. MYCOPHENOLIC TAB 360MG DR [Suspect]
     Active Substance: MYCOPHENOLIC ACID
     Route: 048
     Dates: start: 201905

REACTIONS (2)
  - Blood glucose increased [None]
  - Pneumonia [None]

NARRATIVE: CASE EVENT DATE: 20190918
